FAERS Safety Report 4792259-6 (Version None)
Quarter: 2005Q4

REPORT INFORMATION
  Report Type: 
  Country: None (occurrence: None)
  Receive Date: 20051007
  Receipt Date: 20050630
  Transmission Date: 20060501
  Serious: Yes (Death, Life-Threatening, Hospitalization, Disabling)
  Sender: FDA-Public Use
  Company Number: US-MERCK-0507USA00248

PATIENT
  Age: 80 Year
  Sex: Female
  Weight: 45 kg

DRUGS (2)
  1. FOSAMAX [Suspect]
     Indication: OSTEOPOROSIS
     Route: 048
     Dates: start: 20010101, end: 20050101
  2. FOSAMAX [Suspect]
     Route: 048
     Dates: start: 19950101, end: 19990101

REACTIONS (7)
  - ANAEMIA [None]
  - ANOREXIA [None]
  - FALL [None]
  - GASTRIC CANCER [None]
  - GENERAL PHYSICAL HEALTH DETERIORATION [None]
  - HIP FRACTURE [None]
  - WEIGHT DECREASED [None]
